FAERS Safety Report 10143644 (Version 1)
Quarter: 2014Q2

REPORT INFORMATION
  Report Type: Spontaneous
  Country: US (occurrence: US)
  Receive Date: 20140430
  Receipt Date: 20140430
  Transmission Date: 20141212
  Serious: No
  Sender: FDA-Public Use
  Company Number: US-PFIZER INC-2014116692

PATIENT
  Age: 66 Year
  Sex: Male
  Weight: 70.3 kg

DRUGS (20)
  1. TRIAZOLAM [Suspect]
     Indication: INSOMNIA
     Dosage: 0.25 MG, DAILY
  2. ASPIRIN [Concomitant]
     Dosage: 81 MG, UNK
  3. NEXIUM [Concomitant]
     Dosage: 40 MG, UNK
  4. CALCIUM [Concomitant]
     Dosage: 600 MG, 2X/DAY
  5. AVAPRO [Concomitant]
     Dosage: 300 MG, UNK
  6. BYSTOLIC [Concomitant]
     Dosage: 5 MG, UNK
  7. NORVASC [Concomitant]
     Dosage: 5 MG, UNK
  8. HYDROCHLOROTHIAZIDE [Concomitant]
     Dosage: 12.5 MG, UNK
  9. VITAMIN D [Concomitant]
     Dosage: 50000 IU, WEEKLY
  10. VITAMIN D [Concomitant]
     Dosage: 2000 IU, DAILY
  11. SYNTHROID [Concomitant]
     Dosage: 0.2 MG, UNK
  12. WELCHOL [Concomitant]
     Dosage: 6 DF, DAILY
  13. FENOFIBRATE [Concomitant]
     Dosage: 130 MG, UNK
  14. JANUVIA [Concomitant]
     Dosage: 100 MG, UNK
  15. ACTOS [Concomitant]
     Dosage: 30 MG, UNK
  16. LOVAZA [Concomitant]
     Dosage: UNK, 2X/DAY
  17. METFORMIN [Concomitant]
     Dosage: 500 MG, DAILY
  18. GABAPENTIN [Concomitant]
     Dosage: 1200 MG, DAILY
  19. SERZONE [Concomitant]
     Dosage: 150 MG, DAILY
  20. CRESTOR [Concomitant]
     Dosage: 20 MG, 2X/WEEK

REACTIONS (1)
  - Drug screen false positive [Unknown]
